FAERS Safety Report 7476233-7 (Version None)
Quarter: 2011Q2

REPORT INFORMATION
  Report Type: 
  Country: None (occurrence: None)
  Receive Date: 20110512
  Receipt Date: 20110503
  Transmission Date: 20111010
  Serious: Yes (Other)
  Sender: FDA-Public Use
  Company Number: GB-ASTRAZENECA-2011SE25753

PATIENT
  Age: 44 Year
  Sex: Male

DRUGS (9)
  1. AMLODIPINE BESYLATE [Concomitant]
     Indication: HYPERTENSION
  2. GLICLAZIDE [Concomitant]
     Indication: DIABETES MELLITUS
  3. SYMBICORT [Concomitant]
     Indication: ASTHMA
  4. ZOPLICONE [Concomitant]
     Indication: INSOMNIA
  5. QUETIAPINE [Suspect]
     Indication: PSYCHOTIC DISORDER
     Route: 065
  6. METFORMIN HCL [Concomitant]
     Indication: TYPE 2 DIABETES MELLITUS
  7. RAMIPRIL [Concomitant]
     Indication: HYPERTENSION
  8. RISPERDAL [Suspect]
     Indication: PSYCHOTIC DISORDER
     Route: 048
  9. SILDENAFIL [Concomitant]
     Indication: ERECTILE DYSFUNCTION

REACTIONS (1)
  - WHITE BLOOD CELL COUNT INCREASED [None]
